FAERS Safety Report 10647306 (Version 2)
Quarter: 2014Q4

REPORT INFORMATION
  Report Type: Spontaneous
  Country: GB (occurrence: GB)
  Receive Date: 20141211
  Receipt Date: 20141211
  Transmission Date: 20150529
  Serious: Yes (Other)
  Sender: FDA-Public Use
  Company Number: GB-ASTRAZENECA-2014SE85367

PATIENT
  Age: 8 Year
  Sex: Male
  Weight: 37.9 kg

DRUGS (3)
  1. EMLA [Suspect]
     Active Substance: LIDOCAINE\PRILOCAINE
     Dosage: 5%(2.5%+2.5%), 5MG ONCE ONLY
     Route: 048
     Dates: start: 20141107
  2. RISPERIDONE. [Concomitant]
     Active Substance: RISPERIDONE
     Indication: AGGRESSION
     Route: 048
     Dates: start: 2013
  3. SERTRALINE [Concomitant]
     Active Substance: SERTRALINE HYDROCHLORIDE
     Indication: ANXIETY
     Route: 048

REACTIONS (6)
  - Nausea [Unknown]
  - Accidental exposure to product [Unknown]
  - Dysphagia [Unknown]
  - Throat irritation [Unknown]
  - Eye disorder [Unknown]
  - Asthenia [Unknown]

NARRATIVE: CASE EVENT DATE: 20141107
